FAERS Safety Report 9207559 (Version 4)
Quarter: 2013Q3

REPORT INFORMATION
  Report Type: Spontaneous
  Country: CA (occurrence: CA)
  Receive Date: 20130403
  Receipt Date: 20130801
  Transmission Date: 20140515
  Serious: Yes (Other)
  Sender: FDA-Public Use
  Company Number: CA-ROCHE-1208884

PATIENT
  Age: 46 Year
  Sex: Female

DRUGS (7)
  1. XOLAIR [Suspect]
     Indication: ASTHMA
     Route: 058
     Dates: start: 20110810
  2. XOLAIR [Suspect]
     Route: 058
     Dates: start: 20111019
  3. ADVAIR [Concomitant]
  4. SPIRIVA [Concomitant]
  5. SINGULAIR [Concomitant]
  6. REACTINE (CANADA) [Concomitant]
     Indication: SEASONAL ALLERGY
     Route: 065
  7. VENTOLIN [Concomitant]

REACTIONS (11)
  - Anaphylactic reaction [Recovering/Resolving]
  - Lower respiratory tract infection [Recovering/Resolving]
  - Asthma [Unknown]
  - Asthenia [Recovering/Resolving]
  - Malaise [Recovering/Resolving]
  - Weight decreased [Recovering/Resolving]
  - Sciatica [Recovering/Resolving]
  - Pain in extremity [Recovering/Resolving]
  - Joint stiffness [Recovering/Resolving]
  - Gastroenteritis viral [Recovering/Resolving]
  - Humidity intolerance [Unknown]
